FAERS Safety Report 8988437 (Version 1)
Quarter: 2012Q4

REPORT INFORMATION
  Report Type: Spontaneous
  Country: US (occurrence: None)
  Receive Date: 20121221
  Receipt Date: 20121221
  Transmission Date: 20130627
  Serious: Yes (Hospitalization)
  Sender: FDA-Public Use
  Company Number: None

PATIENT
  Age: 77 Year
  Sex: Female
  Weight: 78.5 kg

DRUGS (1)
  1. LOSARTAN [Suspect]
     Indication: HYPERTENSION
     Dosage: 75 MG  AT BEDTIME  PO
     Route: 048
     Dates: start: 20120824, end: 20121116

REACTIONS (12)
  - Meningitis aseptic [None]
  - Depression [None]
  - Rash [None]
  - Herpes simplex serology positive [None]
  - Herpes simplex [None]
  - Pyrexia [None]
  - Rash macular [None]
  - Abnormal behaviour [None]
  - Aphthous stomatitis [None]
  - Urticaria [None]
  - Pruritus [None]
  - Oral pain [None]
